FAERS Safety Report 9203222 (Version 1)
Quarter: 2013Q1

REPORT INFORMATION
  Report Type: Spontaneous
  Country: CA (occurrence: None)
  Receive Date: 20130328
  Receipt Date: 20130328
  Transmission Date: 20140127
  Serious: Yes (Death)
  Sender: FDA-Public Use
  Company Number: ADR-2013-00513

PATIENT
  Sex: 0

DRUGS (1)
  1. BACLOFEN INTRATHECAL [Suspect]

REACTIONS (2)
  - Pneumonia [None]
  - Multiple sclerosis [None]
